FAERS Safety Report 4898058-9 (Version None)
Quarter: 2006Q1

REPORT INFORMATION
  Report Type: 
  Country: None (occurrence: None)
  Receive Date: 20060130
  Receipt Date: 20060119
  Transmission Date: 20060701
  Serious: Yes (Hospitalization)
  Sender: FDA-Public Use
  Company Number: 200610137BWH

PATIENT
  Age: 75 Year
  Sex: Male
  Weight: 100.4 kg

DRUGS (8)
  1. SORAFENIB [Suspect]
     Indication: NON-SMALL CELL LUNG CANCER METASTATIC
     Dosage: 400 MG, BID, ORAL
     Route: 048
     Dates: start: 20051216, end: 20060106
  2. ASPIRIN [Concomitant]
  3. LOFIBRA [Concomitant]
  4. MORPHINE SULFATE [Concomitant]
  5. ACCUPRIL [Concomitant]
  6. DEXAMETHASONE [Concomitant]
  7. FOLIC ACID [Concomitant]
  8. ZOCOR [Concomitant]

REACTIONS (4)
  - HYPOXIA [None]
  - MALIGNANT NEOPLASM PROGRESSION [None]
  - PULMONARY EMBOLISM [None]
  - THROMBOSIS [None]
